FAERS Safety Report 6328023-6 (Version None)
Quarter: 2009Q3

REPORT INFORMATION
  Report Type: 
  Country: None (occurrence: None)
  Receive Date: 20090825
  Receipt Date: 20080826
  Transmission Date: 20100115
  Serious: No
  Sender: FDA-Public Use
  Company Number: US-ABBOTT-08P-163-0472968-00

PATIENT
  Sex: Female
  Weight: 50.848 kg

DRUGS (3)
  1. SYNTHROID [Suspect]
     Indication: HORMONE REPLACEMENT THERAPY
     Route: 048
     Dates: start: 20080701
  2. SYNTHROID [Suspect]
     Dates: start: 20080701
  3. LORAZEPAM [Concomitant]
     Indication: ANXIETY
     Route: 048

REACTIONS (7)
  - BACK PAIN [None]
  - BLOOD THYROID STIMULATING HORMONE ABNORMAL [None]
  - DYSACUSIS [None]
  - HYPERTHYROIDISM [None]
  - HYPOAESTHESIA [None]
  - INSOMNIA [None]
  - PARAESTHESIA [None]
